FAERS Safety Report 11057699 (Version 1)
Quarter: 2015Q2

REPORT INFORMATION
  Report Type: Report from Study
  Country: US (occurrence: US)
  Receive Date: 20150423
  Receipt Date: 20150423
  Transmission Date: 20150821
  Serious: Yes (Other)
  Sender: FDA-Public Use
  Company Number: US-ROCHE-1566132

PATIENT

DRUGS (2)
  1. ALTEPLASE [Suspect]
     Active Substance: ALTEPLASE
     Indication: DEVICE OCCLUSION
     Dosage: 5 - 20UG
     Route: 050
  2. BETADINE [Concomitant]
     Active Substance: POVIDONE-IODINE
     Indication: PREMEDICATION
     Dosage: 5% SOLUTION
     Route: 065

REACTIONS (3)
  - Flat anterior chamber of eye [Unknown]
  - Hyphaema [Unknown]
  - Hypotonia [Unknown]
